FAERS Safety Report 7682438-2 (Version None)
Quarter: 2011Q3

REPORT INFORMATION
  Report Type: 
  Country: None (occurrence: None)
  Receive Date: 20110815
  Receipt Date: 20110803
  Transmission Date: 20111222
  Serious: Yes (Hospitalization)
  Sender: FDA-Public Use
  Company Number: DE-JNJFOC-20110604285

PATIENT
  Sex: Female
  Weight: 59.1 kg

DRUGS (9)
  1. FOLIC ACID [Concomitant]
  2. PROBIOTICS [Concomitant]
  3. MESALAMINE [Concomitant]
     Route: 048
  4. HUMIRA [Suspect]
     Indication: PRODUCT USED FOR UNKNOWN INDICATION
     Dates: start: 20080716, end: 20090127
  5. BUDESONIDE [Concomitant]
  6. ZINC [Concomitant]
  7. INFLIXIMAB, RECOMBINANT [Suspect]
     Indication: CROHN'S DISEASE
     Route: 042
     Dates: start: 20060302, end: 20090310
  8. MERCAPTOPURINE [Concomitant]
  9. ANTIBIOTICS [Concomitant]
     Indication: CROHN'S DISEASE

REACTIONS (1)
  - CROHN'S DISEASE [None]
